FAERS Safety Report 7418630-1 (Version None)
Quarter: 2011Q2

REPORT INFORMATION
  Report Type: 
  Country: None (occurrence: None)
  Receive Date: 20110415
  Receipt Date: 20110224
  Transmission Date: 20111010
  Serious: Yes (Hospitalization, Other)
  Sender: FDA-Public Use
  Company Number: US-BAYER-201029489NA

PATIENT
  Age: 20 Year
  Sex: Female
  Weight: 61.678 kg

DRUGS (10)
  1. YASMIN [Suspect]
     Indication: ACNE
  2. FERROUS SULFATE [Concomitant]
     Indication: ANAEMIA
     Dosage: 325 MG, UNK
     Route: 048
     Dates: start: 20060106
  3. YAZ [Suspect]
     Indication: MENORRHAGIA
  4. YASMIN [Suspect]
     Indication: MENORRHAGIA
  5. OCELLA [Suspect]
     Indication: MENORRHAGIA
  6. YASMIN [Suspect]
     Indication: PREMENSTRUAL SYNDROME
     Dosage: UNK UNK, QD
     Dates: start: 20050101, end: 20070101
  7. OCELLA [Suspect]
     Indication: PREMENSTRUAL SYNDROME
     Dosage: UNK UNK, QD
     Dates: start: 20050101, end: 20070101
  8. YAZ [Suspect]
     Indication: PREMENSTRUAL SYNDROME
     Dosage: UNK UNK, QD
     Dates: start: 20050101, end: 20070101
  9. YAZ [Suspect]
     Indication: ACNE
  10. OCELLA [Suspect]
     Indication: ACNE

REACTIONS (3)
  - HEART RATE IRREGULAR [None]
  - CARDIAC DISORDER [None]
  - ARRHYTHMIA [None]
